FAERS Safety Report 11695245 (Version 2)
Quarter: 2015Q4

REPORT INFORMATION
  Report Type: Spontaneous
  Country: JP (occurrence: JP)
  Receive Date: 20151103
  Receipt Date: 20151207
  Transmission Date: 20160304
  Serious: No
  Sender: FDA-Public Use
  Company Number: JP-ALLERGAN-1522489US

PATIENT
  Age: 39 Year
  Sex: Female

DRUGS (4)
  1. ALPHAGAN P [Suspect]
     Active Substance: BRIMONIDINE TARTRATE
     Indication: GLAUCOMA
     Dosage: 1 GTT, BID
     Route: 047
     Dates: start: 20150205
  2. COSOPT [Suspect]
     Active Substance: DORZOLAMIDE HYDROCHLORIDE\TIMOLOL MALEATE
     Indication: GLAUCOMA
     Dosage: 1 GTT, BID
     Route: 047
     Dates: start: 20150205
  3. HYALEIN [Suspect]
     Active Substance: HYALURONATE SODIUM
     Indication: DRY EYE
     Dosage: 1 GTT, TID
     Route: 047
     Dates: start: 20150205
  4. LUMIGAN [Suspect]
     Active Substance: BIMATOPROST
     Indication: GLAUCOMA
     Dosage: 2 GTT, QD
     Route: 047
     Dates: start: 20120215, end: 20151005

REACTIONS (3)
  - Lid sulcus deepened [Unknown]
  - Eyelid ptosis [Unknown]
  - Eyelid disorder [Unknown]

NARRATIVE: CASE EVENT DATE: 20150629
